FAERS Safety Report 10755946 (Version 1)
Quarter: 2015Q1

REPORT INFORMATION
  Report Type: Spontaneous
  Country: US (occurrence: None)
  Receive Date: 20150123
  Receipt Date: 20150123
  Transmission Date: 20150721
  Serious: No
  Sender: FDA-Public Use
  Company Number: 2014TUS006963

PATIENT
  Age: 19 Year
  Sex: Female

DRUGS (1)
  1. ENTYVIO [Suspect]
     Active Substance: VEDOLIZUMAB
     Indication: CROHN^S DISEASE
     Dosage: WEEK ZERO, INTRAVENOUS
     Route: 042
     Dates: start: 20140718

REACTIONS (2)
  - Crohn^s disease [None]
  - Exposure during pregnancy [None]

NARRATIVE: CASE EVENT DATE: 20140724
